FAERS Safety Report 8231274-7 (Version None)
Quarter: 2012Q1

REPORT INFORMATION
  Report Type: 
  Country: None (occurrence: None)
  Receive Date: 20120321
  Receipt Date: 20120312
  Transmission Date: 20120608
  Serious: Yes (Death, Hospitalization, Other)
  Sender: FDA-Public Use
  Company Number: AUR-APL-2012-01468

PATIENT
  Age: 27 Year
  Sex: Female

DRUGS (6)
  1. QUETIAPINE FUMARATE [Suspect]
     Indication: PRODUCT USED FOR UNKNOWN INDICATION
     Dosage: (25 MG)
  2. RISPERIDONE [Suspect]
     Indication: DEPRESSION
     Dosage: 0.5 MG (0.5 MG, 1 IN 1 D)
  3. LORAZEPAM [Suspect]
     Indication: CATATONIA
     Dosage: (2 MG), INTRAVENOUS, (2 MG, ONCE), INTRAMUSCULAR
     Route: 042
  4. LORAZEPAM [Suspect]
     Indication: AGITATION
     Dosage: (2 MG), INTRAVENOUS, (2 MG, ONCE), INTRAMUSCULAR
     Route: 042
  5. SERTRALINE HYDROCHLORIDE [Suspect]
     Indication: DEPRESSION
     Dosage: (50 MG, 1 D)
  6. HALOPERIDOL [Suspect]
     Indication: AGITATION
     Dosage: (5 MG), INTRAMUSCULAR
     Route: 030

REACTIONS (16)
  - CONDITION AGGRAVATED [None]
  - HALLUCINATION, AUDITORY [None]
  - STUPOR [None]
  - BLOOD GLUCOSE INCREASED [None]
  - DEPRESSION [None]
  - PULMONARY EMBOLISM [None]
  - UNRESPONSIVE TO STIMULI [None]
  - BLOOD PRESSURE DECREASED [None]
  - STARING [None]
  - BLOOD FIBRINOGEN INCREASED [None]
  - CARDIO-RESPIRATORY ARREST [None]
  - AGITATION [None]
  - HEART RATE INCREASED [None]
  - PARANOIA [None]
  - KETONURIA [None]
  - CATATONIA [None]
